FAERS Safety Report 7334878-9 (Version None)
Quarter: 2011Q1

REPORT INFORMATION
  Report Type: 
  Country: None (occurrence: None)
  Receive Date: 20110224
  Receipt Date: 20110210
  Transmission Date: 20110831
  Serious: Yes (Other)
  Sender: FDA-Public Use
  Company Number: 027320

PATIENT

DRUGS (7)
  1. IMURAN [Concomitant]
  2. ESTRADIOL [Concomitant]
  3. SULFASALAZINE [Concomitant]
  4. CIMZIA [Suspect]
     Indication: CROHN'S DISEASE
     Dosage: 400 MG  1/X MONTH, TRANPLACENTAL. SEE IMAGE
     Route: 064
     Dates: start: 20090514
  5. FLAXSEED OIL [Concomitant]
  6. PROGESTERONE [Concomitant]
  7. VIVELLE-DOT [Concomitant]

REACTIONS (2)
  - PREMATURE BABY [None]
  - MATERNAL DRUGS AFFECTING FOETUS [None]
